FAERS Safety Report 7326323-4 (Version None)
Quarter: 2011Q1

REPORT INFORMATION
  Report Type: 
  Country: None (occurrence: None)
  Receive Date: 20110302
  Receipt Date: 20101213
  Transmission Date: 20110831
  Serious: Yes (Other)
  Sender: FDA-Public Use
  Company Number: B0689426A

PATIENT
  Sex: Male

DRUGS (4)
  1. SERENACE [Concomitant]
     Dosage: 1MG PER DAY
  2. LAMICTAL [Suspect]
     Indication: EPILEPSY
     Dosage: 25MG PER DAY
     Route: 048
  3. MYSTAN [Concomitant]
     Indication: CONVULSION
     Dosage: 10MG PER DAY
     Route: 048
  4. TEGRETOL [Concomitant]
     Indication: CONVULSION
     Dosage: 600MG PER DAY
     Route: 048

REACTIONS (5)
  - EXTRASYSTOLES [None]
  - MUSCULOSKELETAL STIFFNESS [None]
  - LOSS OF CONSCIOUSNESS [None]
  - MUSCLE SPASMS [None]
  - BRADYCARDIA [None]
